FAERS Safety Report 7600587-1 (Version None)
Quarter: 2011Q3

REPORT INFORMATION
  Report Type: 
  Country: None (occurrence: None)
  Receive Date: 20110711
  Receipt Date: 20110707
  Transmission Date: 20111222
  Serious: Yes (Hospitalization)
  Sender: FDA-Public Use
  Company Number: CH-PFIZER INC-2011152469

PATIENT
  Age: 78 Year
  Sex: Male
  Weight: 80 kg

DRUGS (6)
  1. ATORVASTATIN CALCIUM [Suspect]
     Dosage: UNK
     Route: 048
     Dates: end: 20110414
  2. XARELTO [Suspect]
     Dosage: UNK
     Route: 048
     Dates: end: 20110414
  3. ASPIRIN [Concomitant]
  4. ACETAMINOPHEN [Suspect]
     Indication: PAIN
     Dosage: 1000 MG, UNK
     Route: 048
     Dates: start: 20110323, end: 20110414
  5. LERCANIDIPINE [Suspect]
     Indication: ESSENTIAL HYPERTENSION
     Dosage: UNK
     Route: 048
     Dates: end: 20110414
  6. IRFEN [Concomitant]
     Indication: PAIN

REACTIONS (2)
  - HEPATIC ENZYME INCREASED [None]
  - HYPERBILIRUBINAEMIA [None]
